FAERS Safety Report 12842022 (Version 1)
Quarter: 2016Q4

REPORT INFORMATION
  Report Type: Report from Study
  Country: BR (occurrence: BR)
  Receive Date: 20161012
  Receipt Date: 20161012
  Transmission Date: 20170207
  Serious: Yes (Life-Threatening, Hospitalization)
  Sender: FDA-Public Use
  Company Number: BR-B.I. PHARMACEUTICALS,INC./RIDGEFIELD-2016-BI-53497BR

PATIENT
  Age: 56 Year
  Sex: Male
  Weight: 90 kg

DRUGS (5)
  1. MICARDIS [Suspect]
     Active Substance: TELMISARTAN
     Route: 048
     Dates: start: 201312
  2. EXODUS [Concomitant]
     Active Substance: ESCITALOPRAM OXALATE
     Indication: DEPRESSION
     Route: 048
     Dates: start: 2010
  3. MICARDIS [Suspect]
     Active Substance: TELMISARTAN
     Indication: HYPERTENSION
     Route: 048
     Dates: start: 2009, end: 201312
  4. ROSUVASTATIN. [Concomitant]
     Active Substance: ROSUVASTATIN
     Indication: BLOOD CHOLESTEROL INCREASED
     Route: 048
     Dates: start: 2009, end: 20160801
  5. GLIFAGE [Concomitant]
     Active Substance: METFORMIN HYDROCHLORIDE
     Indication: BLOOD CHOLESTEROL INCREASED
     Route: 048
     Dates: start: 2009, end: 20160801

REACTIONS (6)
  - Hypertension [Recovered/Resolved]
  - Facial paralysis [Recovered/Resolved]
  - Cerebral artery embolism [Recovered/Resolved]
  - Transient ischaemic attack [Recovered/Resolved]
  - Loss of consciousness [Recovered/Resolved]
  - Panic attack [Recovered/Resolved]

NARRATIVE: CASE EVENT DATE: 201312
